FAERS Safety Report 15191387 (Version 1)
Quarter: 2018Q3

REPORT INFORMATION
  Report Type: Report from Study
  Country: US (occurrence: US)
  Receive Date: 20180724
  Receipt Date: 20180724
  Transmission Date: 20181010
  Serious: No
  Sender: FDA-Public Use
  Company Number: US-AMGEN-USASL2018023061

PATIENT
  Sex: Female

DRUGS (1)
  1. KYPROLIS [Suspect]
     Active Substance: CARFILZOMIB
     Indication: PLASMA CELL MYELOMA
     Dosage: UNK UNK, QMO
     Route: 065

REACTIONS (5)
  - Off label use [Unknown]
  - Mobility decreased [Unknown]
  - Myalgia [Unknown]
  - Fatigue [Unknown]
  - Muscular weakness [Unknown]
